FAERS Safety Report 5898665-0 (Version None)
Quarter: 2008Q3

REPORT INFORMATION
  Report Type: 
  Country: None (occurrence: None)
  Receive Date: 20080925
  Receipt Date: 20080326
  Transmission Date: 20090109
  Serious: Yes (Other)
  Sender: FDA-Public Use
  Company Number: A0717612A

PATIENT
  Sex: Female

DRUGS (4)
  1. WELLBUTRIN XL [Suspect]
     Indication: DEPRESSION
     Dosage: 300MG PER DAY
     Route: 048
     Dates: start: 20010801, end: 20050901
  2. XANAX [Concomitant]
  3. ANAFRANIL [Concomitant]
  4. ADDERALL 10 [Concomitant]

REACTIONS (3)
  - CONVULSION [None]
  - EX-TOBACCO USER [None]
  - THERAPEUTIC RESPONSE UNEXPECTED [None]
